FAERS Safety Report 8270046-4 (Version None)
Quarter: 2012Q2

REPORT INFORMATION
  Report Type: 
  Country: None (occurrence: None)
  Receive Date: 20120406
  Receipt Date: 20120324
  Transmission Date: 20120825
  Serious: Yes (Hospitalization)
  Sender: FDA-Public Use
  Company Number: 2012AP000830

PATIENT
  Age: 49 Year
  Sex: Male
  Weight: 74 kg

DRUGS (5)
  1. GEMFIBROZIL [Concomitant]
  2. VARDENAFIL HYDROCHLORIDE (LEVITRA) [Concomitant]
  3. METFORMIN HCL [Suspect]
     Indication: TYPE 2 DIABETES MELLITUS
     Dosage: 52 G
  4. LISINOPRIL [Concomitant]
  5. GLYBURIDE [Suspect]
     Indication: TYPE 2 DIABETES MELLITUS
     Dosage: 350 MG

REACTIONS (28)
  - STREPTOCOCCAL INFECTION [None]
  - MIDDLE EAR DISORDER [None]
  - MULTIPLE DRUG OVERDOSE INTENTIONAL [None]
  - SUICIDE ATTEMPT [None]
  - HYPERNATRAEMIA [None]
  - UNRESPONSIVE TO STIMULI [None]
  - TYMPANIC MEMBRANE PERFORATION [None]
  - DEAFNESS NEUROSENSORY [None]
  - THROMBOCYTOPENIA [None]
  - STAPHYLOCOCCAL INFECTION [None]
  - NO THERAPEUTIC RESPONSE [None]
  - NECROSIS [None]
  - TINNITUS [None]
  - LACTIC ACIDOSIS [None]
  - LEUKOCYTOSIS [None]
  - DRUG LEVEL ABOVE THERAPEUTIC [None]
  - DIARRHOEA [None]
  - HYPERGLYCAEMIA [None]
  - HYPOPERFUSION [None]
  - VERTIGO POSITIONAL [None]
  - HYPOGLYCAEMIA [None]
  - RENAL FAILURE ACUTE [None]
  - RESPIRATORY DISTRESS [None]
  - HYPOTENSION [None]
  - CONTINUOUS HAEMODIAFILTRATION [None]
  - NAUSEA [None]
  - OTITIS EXTERNA [None]
  - CEREBRAL ISCHAEMIA [None]
